FAERS Safety Report 13795707 (Version 1)
Quarter: 2017Q3

REPORT INFORMATION
  Report Type: Spontaneous
  Country: US (occurrence: US)
  Receive Date: 20170726
  Receipt Date: 20170726
  Transmission Date: 20171127
  Serious: Yes (Death, Hospitalization)
  Sender: FDA-Public Use
  Company Number: US-VISTAPHARM, INC.-VER201707-000234

PATIENT
  Age: 66 Year
  Sex: Female

DRUGS (2)
  1. METHADONE [Suspect]
     Active Substance: METHADONE HYDROCHLORIDE
     Indication: DRUG ABUSE
  2. PHENCYCLIDINE [Concomitant]
     Active Substance: PHENCYCLIDINE

REACTIONS (1)
  - Gastrointestinal necrosis [Fatal]
